FAERS Safety Report 20722312 (Version 2)
Quarter: 2022Q2

REPORT INFORMATION
  Report Type: Spontaneous
  Country: IT (occurrence: None)
  Receive Date: 20220418
  Receipt Date: 20220526
  Transmission Date: 20220720
  Serious: Yes (Hospitalization)
  Sender: FDA-Public Use
  Company Number: IT-ROCHE-3071216

PATIENT
  Age: 51 Year
  Sex: Male
  Weight: 65 kg

DRUGS (6)
  1. OCREVUS [Suspect]
     Active Substance: OCRELIZUMAB
     Indication: Multiple sclerosis
     Dosage: FIRST CYCLE
     Route: 042
     Dates: start: 20170328
  2. OCREVUS [Suspect]
     Active Substance: OCRELIZUMAB
     Dosage: FIRST CYCLE
     Route: 042
     Dates: start: 20170413
  3. OCREVUS [Suspect]
     Active Substance: OCRELIZUMAB
     Dosage: LAST OCREVUS ADMINISTRATION WAS IN 04/FEB/2022
     Route: 042
     Dates: start: 20170914
  4. CEFIXIME [Concomitant]
     Active Substance: CEFIXIME
  5. LYRICA [Concomitant]
     Active Substance: PREGABALIN
     Indication: Neuralgia
     Dates: start: 20210330
  6. ATORVASTATIN [Concomitant]
     Active Substance: ATORVASTATIN
     Indication: Hypercholesterolaemia
     Dates: start: 20220202

REACTIONS (3)
  - Pneumonia [Unknown]
  - Musculoskeletal pain [Unknown]
  - Pyrexia [Unknown]

NARRATIVE: CASE EVENT DATE: 20220315
